FAERS Safety Report 5814609-1 (Version None)
Quarter: 2008Q3

REPORT INFORMATION
  Report Type: 
  Country: None (occurrence: None)
  Receive Date: 20080718
  Receipt Date: 20071210
  Transmission Date: 20090109
  Serious: No
  Sender: FDA-Public Use
  Company Number: US-KINGPHARMUSA00001-K200701593

PATIENT

DRUGS (6)
  1. LEVOXYL [Suspect]
     Dosage: 200 MCG, UNK
  2. LEVOXYL [Suspect]
     Dosage: 125 MCG, UNK
  3. LEVOXYL [Suspect]
     Dosage: 112 MCG, QD
     Route: 048
     Dates: start: 20070101
  4. CELEBREX [Concomitant]
  5. EVISTA [Concomitant]
  6. ALL OTHER THERAPEUTIC PRODUCTS [Concomitant]

REACTIONS (3)
  - HEADACHE [None]
  - MALAISE [None]
  - VOMITING [None]
